FAERS Safety Report 17684254 (Version 2)
Quarter: 2020Q2

REPORT INFORMATION
  Report Type: Report from Study
  Country: US (occurrence: US)
  Receive Date: 20200420
  Receipt Date: 20200423
  Transmission Date: 20200714
  Serious: Yes (Hospitalization)
  Sender: FDA-Public Use
  Company Number: PHHO2018US004359

PATIENT
  Age: 59 Year
  Sex: Female
  Weight: 47 kg

DRUGS (29)
  1. TACROLIMUS. [Suspect]
     Active Substance: TACROLIMUS
     Indication: IMMUNOSUPPRESSION
     Dosage: Q 12 HOURS
     Route: 065
     Dates: start: 20180307
  2. COMPARATOR PREDNISONE [Suspect]
     Active Substance: PREDNISONE
     Dosage: 15 MILLIGRAM, QD
     Route: 048
     Dates: start: 20171118
  3. COMPARATOR PREDNISONE [Suspect]
     Active Substance: PREDNISONE
     Dosage: 5 MILLIGRAM, QD
     Route: 048
     Dates: start: 20180315
  4. COMPARATOR METHYLPREDNISOLONE [Suspect]
     Active Substance: METHYLPREDNISOLONE
     Dosage: 70 MILLIGRAM; BID, 40 MG AM AND 30 MG PM
     Route: 042
     Dates: start: 20170823
  5. COMPARATOR METHYLPREDNISOLONE [Suspect]
     Active Substance: METHYLPREDNISOLONE
     Dosage: 45 MILLIGRAM; BID, 25 MG AM AND 20 MG PM
     Route: 042
     Dates: start: 20170831
  6. COMPARATOR METHYLPREDNISOLONE [Suspect]
     Active Substance: METHYLPREDNISOLONE
     Dosage: 35 MILLIGRAM; BID, 20 MG AM AND 15 MG PM
     Route: 042
     Dates: start: 20170906
  7. COMPARATOR METHYLPREDNISOLONE [Suspect]
     Active Substance: METHYLPREDNISOLONE
     Dosage: 20 MILLIGRAM, BID
     Route: 042
     Dates: start: 20171004
  8. INC424A [Suspect]
     Active Substance: RUXOLITINIB
     Dosage: 5 MG, QD
     Route: 048
     Dates: start: 20180315
  9. COMPARATOR PREDNISONE [Suspect]
     Active Substance: PREDNISONE
     Dosage: 10 MILLIGRAM, QD
     Route: 048
     Dates: start: 20180410
  10. COMPARATOR METHYLPREDNISOLONE [Suspect]
     Active Substance: METHYLPREDNISOLONE
     Dosage: 20 MILLIGRAM, QD
     Route: 042
     Dates: start: 20170824
  11. COMPARATOR METHYLPREDNISOLONE [Suspect]
     Active Substance: METHYLPREDNISOLONE
     Dosage: 60 MILLIGRAM, BID
     Route: 042
     Dates: start: 20170825
  12. COMPARATOR METHYLPREDNISOLONE [Suspect]
     Active Substance: METHYLPREDNISOLONE
     Dosage: 30 MILLIGRAM, BID
     Route: 042
     Dates: start: 20170928
  13. COMPARATOR METHYLPREDNISOLONE [Suspect]
     Active Substance: METHYLPREDNISOLONE
     Dosage: 90 MILLIGRAM, 40 MG AM AND 50 MG PM
     Route: 042
     Dates: start: 20170822
  14. COMPARATOR METHYLPREDNISOLONE [Suspect]
     Active Substance: METHYLPREDNISOLONE
     Dosage: 50 MILLIGRAM, BID
     Route: 042
     Dates: start: 20170829
  15. COMPARATOR METHYLPREDNISOLONE [Suspect]
     Active Substance: METHYLPREDNISOLONE
     Dosage: 10 MILLIGRAM, QD
     Route: 042
     Dates: start: 20171108
  16. COMPARATOR METHYLPREDNISOLONE [Suspect]
     Active Substance: METHYLPREDNISOLONE
     Dosage: 90 MILLIGRAM, BID, 50 MG AM AND 40 MG PM
     Route: 042
     Dates: start: 20170819
  17. COMPARATOR METHYLPREDNISOLONE [Suspect]
     Active Substance: METHYLPREDNISOLONE
     Dosage: 55 MILLIGRAM; BID, 30 MG AM AND 25 MG PM
     Route: 042
     Dates: start: 20170826
  18. COMPARATOR METHYLPREDNISOLONE [Suspect]
     Active Substance: METHYLPREDNISOLONE
     Dosage: 10 MILLIGRAM, QD
     Route: 042
     Dates: start: 20171020
  19. TACROLIMUS. [Suspect]
     Active Substance: TACROLIMUS
     Dosage: UNK
     Route: 065
     Dates: start: 20180314
  20. COMPARATOR PREDNISONE [Suspect]
     Active Substance: PREDNISONE
     Indication: GRAFT VERSUS HOST DISEASE IN GASTROINTESTINAL TRACT
     Dosage: 10 MILLIGRAM, QD
     Route: 048
     Dates: start: 20171026
  21. COMPARATOR PREDNISONE [Suspect]
     Active Substance: PREDNISONE
     Dosage: 10 MILLIGRAM, QD
     Route: 048
     Dates: start: 20171120
  22. COMPARATOR METHYLPREDNISOLONE [Suspect]
     Active Substance: METHYLPREDNISOLONE
     Indication: GRAFT VERSUS HOST DISEASE IN GASTROINTESTINAL TRACT
     Dosage: 100 MILLIGRAM, BID
     Route: 042
     Dates: start: 20170818, end: 20170818
  23. COMPARATOR METHYLPREDNISOLONE [Suspect]
     Active Substance: METHYLPREDNISOLONE
     Dosage: 45 MILLIGRAM; BID, 25 MG AM AND 20 MG PM
     Route: 042
     Dates: start: 20170901
  24. COMPARATOR METHYLPREDNISOLONE [Suspect]
     Active Substance: METHYLPREDNISOLONE
     Dosage: 40 MILLIGRAM, BID
     Route: 042
     Dates: start: 20170904
  25. COMPARATOR PREDNISONE [Suspect]
     Active Substance: PREDNISONE
     Dosage: 10 MILLIGRAM, QD
     Route: 048
     Dates: start: 20180324
  26. INC424A [Suspect]
     Active Substance: RUXOLITINIB
     Indication: GRAFT VERSUS HOST DISEASE IN GASTROINTESTINAL TRACT
     Dosage: 5 MG, BID
     Route: 048
     Dates: start: 20170818, end: 20180314
  27. COMPARATOR PREDNISONE [Suspect]
     Active Substance: PREDNISONE
     Dosage: 7.5 MILLIGRAM, QD
     Route: 048
     Dates: start: 20180327
  28. COMPARATOR METHYLPREDNISOLONE [Suspect]
     Active Substance: METHYLPREDNISOLONE
     Dosage: 80 MILLIGRAM, BID
     Route: 042
     Dates: start: 20170820
  29. COMPARATOR METHYLPREDNISOLONE [Suspect]
     Active Substance: METHYLPREDNISOLONE
     Dosage: 25 MILLIGRAM, BID
     Route: 042
     Dates: start: 20171001

REACTIONS (5)
  - Bronchopulmonary aspergillosis [Recovered/Resolved with Sequelae]
  - Pneumonia [Recovered/Resolved]
  - Pneumonia [Recovered/Resolved]
  - Bacteraemia [Recovered/Resolved]
  - Diarrhoea [Recovered/Resolved]

NARRATIVE: CASE EVENT DATE: 20180310
